FAERS Safety Report 13652044 (Version 2)
Quarter: 2017Q3

REPORT INFORMATION
  Report Type: Report from Study
  Country: US (occurrence: US)
  Receive Date: 20170614
  Receipt Date: 20170725
  Transmission Date: 20171127
  Serious: Yes (Other)
  Sender: FDA-Public Use
  Company Number: US-BAYER-2017-108877

PATIENT
  Age: 58 Year
  Sex: Male

DRUGS (1)
  1. NEXAVAR [Suspect]
     Active Substance: SORAFENIB
     Indication: HEPATIC CANCER
     Dosage: TAKE HALF OF ONE TABLET TWICE DAILY
     Route: 048
     Dates: start: 20170529, end: 20170531

REACTIONS (4)
  - Off label use [None]
  - Gait inability [None]
  - Arthralgia [None]
  - Anxiety [None]
